FAERS Safety Report 10966639 (Version 1)
Quarter: 2015Q1

REPORT INFORMATION
  Report Type: Spontaneous
  Country: None (occurrence: None)
  Receive Date: 20150226
  Receipt Date: 20150226
  Transmission Date: 20150721
  Serious: No
  Sender: FDA-Public Use
  Company Number: TPA2010A00899

PATIENT
  Age: 82 Year
  Sex: Male
  Weight: 59.42 kg

DRUGS (9)
  1. TOPROL (ALL OTHER THERAPEUTIC PRODUCTS) [Concomitant]
  2. TIGER BALM (CAMPHOR, MENTHOL, SYZYGIUM AROMATICUM OIL, EUCALYPTUS GLOBULUS OIL) [Concomitant]
  3. SIMVASTATIN. [Concomitant]
     Active Substance: SIMVASTATIN
  4. POTASSIUM [Concomitant]
     Active Substance: POTASSIUM
  5. ULORIC [Suspect]
     Active Substance: FEBUXOSTAT
     Indication: GOUT
     Route: 048
     Dates: start: 20100114, end: 20100304
  6. PLAVIX [Concomitant]
     Active Substance: CLOPIDOGREL BISULFATE
  7. ASPIRIN (ACETYLSALICYLIC ACID) [Concomitant]
     Active Substance: ASPIRIN
  8. MAXZIDE (HYDROCHLOROTHIAZIDE, TRIAMTERENE) [Concomitant]
  9. ACETAMINOPHEN (PARACETAMOL) [Concomitant]
     Active Substance: ACETAMINOPHEN

REACTIONS (2)
  - Drug ineffective [None]
  - Fall [None]
